FAERS Safety Report 20835052 (Version 4)
Quarter: 2022Q3

REPORT INFORMATION
  Report Type: Report from Study
  Country: JP (occurrence: None)
  Receive Date: 20220516
  Receipt Date: 20220725
  Transmission Date: 20221026
  Serious: Yes (Hospitalization)
  Sender: FDA-Public Use
  Company Number: JP-Eisai Medical Research-EC-2022-114725

PATIENT
  Age: 65 Year
  Sex: Male
  Weight: 35.8 kg

DRUGS (28)
  1. LENVATINIB [Suspect]
     Active Substance: LENVATINIB
     Indication: Oesophageal cancer metastatic
     Dosage: STARTING DOSE AT 8MG, FLUCTUATED DOSAGE
     Route: 048
     Dates: start: 20210928, end: 20220507
  2. PEMBROLIZUMAB [Suspect]
     Active Substance: PEMBROLIZUMAB
     Indication: Oesophageal cancer metastatic
     Route: 042
     Dates: start: 20210928, end: 20220328
  3. PEMBROLIZUMAB [Suspect]
     Active Substance: PEMBROLIZUMAB
     Route: 042
     Dates: start: 20220513
  4. FLUOROURACIL [Suspect]
     Active Substance: FLUOROURACIL
     Indication: Oesophageal cancer metastatic
     Dosage: DOSE UNKNOWN
     Route: 042
     Dates: start: 20210928, end: 20211218
  5. CISPLATIN [Suspect]
     Active Substance: CISPLATIN
     Indication: Oesophageal cancer metastatic
     Dosage: DOSE UNKNOWN
     Route: 042
     Dates: start: 20210928, end: 20211213
  6. CISPLATIN [Suspect]
     Active Substance: CISPLATIN
     Dosage: DOSE UNKNOWN
     Route: 042
     Dates: start: 20211213
  7. KETOPROFEN [Concomitant]
     Active Substance: KETOPROFEN
     Dates: start: 20111115
  8. PRAMIPEXOLE [Concomitant]
     Active Substance: PRAMIPEXOLE
     Dates: start: 20200714
  9. LANSOPRAZOLE [Concomitant]
     Active Substance: LANSOPRAZOLE
     Dates: start: 20200717
  10. CLONAZEPAM [Concomitant]
     Active Substance: CLONAZEPAM
     Dates: start: 20200721
  11. DEXAMETHASONE [Concomitant]
     Active Substance: DEXAMETHASONE
     Dates: start: 20210927
  12. TRAZODONE HYDROCHLORIDE [Concomitant]
     Active Substance: TRAZODONE HYDROCHLORIDE
     Dates: start: 20210927
  13. HEPARINOID [Concomitant]
     Route: 061
     Dates: start: 20210930
  14. SENNOSIDES [Concomitant]
     Active Substance: SENNOSIDES
     Dates: start: 20211001
  15. AZUNOL [Concomitant]
     Dates: start: 20211101
  16. PETROLATUM [Concomitant]
     Active Substance: PETROLATUM
     Dates: start: 20211101
  17. JUVELA [Concomitant]
     Active Substance: .ALPHA.-TOCOPHEROL\RETINOL
     Dates: start: 20211101
  18. AZ COMBINATION [Concomitant]
     Route: 048
     Dates: start: 20211108
  19. CALONAL [Concomitant]
     Active Substance: ACETAMINOPHEN
     Dates: start: 20211116
  20. FLUNITRAZEPAM [Concomitant]
     Active Substance: FLUNITRAZEPAM
     Dates: start: 20211206, end: 20220626
  21. OLOPATADINE HYDROCHLORIDE [Concomitant]
     Active Substance: OLOPATADINE HYDROCHLORIDE
     Dates: start: 20211214
  22. NOVAMIN [Concomitant]
     Dates: start: 20211216
  23. OXINORM [Concomitant]
     Dates: start: 20211219
  24. GLYCERIN [Concomitant]
     Active Substance: GLYCERIN
     Dates: start: 20211224
  25. XYLOCAINE [Concomitant]
     Active Substance: LIDOCAINE HYDROCHLORIDE
     Dates: start: 20211224
  26. OXYCODONE HYDROCHLORIDE [Concomitant]
     Active Substance: OXYCODONE HYDROCHLORIDE
     Dates: start: 20220117
  27. LEVOTHYROXINE SODIUM [Concomitant]
     Active Substance: LEVOTHYROXINE SODIUM
     Dates: start: 20220307
  28. FUROSEMIDE [Concomitant]
     Active Substance: FUROSEMIDE
     Dates: start: 20220418

REACTIONS (1)
  - Hyponatraemia [Recovered/Resolved]

NARRATIVE: CASE EVENT DATE: 20220509
